FAERS Safety Report 9447670 (Version 1)
Quarter: 2013Q3

REPORT INFORMATION
  Report Type: Spontaneous
  Country: US (occurrence: None)
  Receive Date: 20130807
  Receipt Date: 20130807
  Transmission Date: 20140515
  Serious: Yes (Hospitalization)
  Sender: FDA-Public Use
  Company Number: None

PATIENT
  Age: 6 Year
  Sex: Male
  Weight: 36.4 kg

DRUGS (2)
  1. FEIBA [Suspect]
     Indication: FACTOR VIII DEFICIENCY
     Dosage: 3400 UNITS DAILY IV VIA PAC PORT
     Route: 042
     Dates: start: 20130717
  2. FEIBA [Suspect]
     Indication: FACTOR VIII INHIBITION
     Dosage: 3400 UNITS DAILY IV VIA PAC PORT
     Route: 042
     Dates: start: 20130717

REACTIONS (6)
  - Cough [None]
  - Headache [None]
  - Dizziness [None]
  - Dyspnoea [None]
  - Product solubility abnormal [None]
  - Chest pain [None]
